FAERS Safety Report 8172878-X (Version None)
Quarter: 2012Q1

REPORT INFORMATION
  Report Type: 
  Country: None (occurrence: None)
  Receive Date: 20120229
  Receipt Date: 20120229
  Transmission Date: 20120608
  Serious: Yes (Other)
  Sender: FDA-Public Use
  Company Number: None

PATIENT
  Age: 35 Year
  Sex: Female
  Weight: 158.75 kg

DRUGS (2)
  1. VIIBRYD [Concomitant]
     Dosage: 20MG
     Route: 048
     Dates: start: 20111021, end: 20111028
  2. VIIBRYD [Suspect]
     Indication: DEPRESSION
     Dosage: 10MG
     Route: 048
     Dates: start: 20111013, end: 20111020

REACTIONS (3)
  - CRYING [None]
  - DIZZINESS [None]
  - NAUSEA [None]
